FAERS Safety Report 4787539-4 (Version None)
Quarter: 2005Q4

REPORT INFORMATION
  Report Type: 
  Country: None (occurrence: None)
  Receive Date: 20051004
  Receipt Date: 20050922
  Transmission Date: 20060501
  Serious: Yes (Other)
  Sender: FDA-Public Use
  Company Number: US-JNJFOC-20050905358

PATIENT
  Sex: Male
  Weight: 104.15 kg

DRUGS (7)
  1. REMICADE [Suspect]
     Dosage: TOTAL OF 15 INFUSIONS
     Route: 042
  2. METHOTREXATE [Concomitant]
  3. FOLIC ACID [Concomitant]
  4. PREDNISONE [Concomitant]
  5. TOPROL-XL [Concomitant]
  6. DIOVAN [Concomitant]
  7. NORVASC [Concomitant]

REACTIONS (1)
  - LUPUS-LIKE SYNDROME [None]
